FAERS Safety Report 7307470-X (Version None)
Quarter: 2011Q1

REPORT INFORMATION
  Report Type: 
  Country: None (occurrence: None)
  Receive Date: 20110223
  Receipt Date: 20110210
  Transmission Date: 20110831
  Serious: Yes (Other)
  Sender: FDA-Public Use
  Company Number: TR-TYCO HEALTHCARE/MALLINCKRODT-T201100314

PATIENT
  Age: 48 Year
  Sex: Female

DRUGS (2)
  1. EXALGO [Suspect]
     Indication: PAIN
     Dosage: 8 MG, UNK
     Route: 048
     Dates: start: 20110210, end: 20110210
  2. XANAX [Concomitant]
     Dosage: UNK

REACTIONS (3)
  - EUPHORIC MOOD [None]
  - AGITATION [None]
  - SCREAMING [None]
